FAERS Safety Report 16988872 (Version 5)
Quarter: 2020Q1

REPORT INFORMATION
  Report Type: Report from Study
  Country: CA (occurrence: CA)
  Receive Date: 20191104
  Receipt Date: 20200310
  Transmission Date: 20200409
  Serious: Yes (Life-Threatening, Hospitalization, Disabling, Other)
  Sender: FDA-Public Use
  Company Number: PHHY2017CA192078

PATIENT
  Age: 57 Year
  Sex: Male
  Weight: 76.2 kg

DRUGS (4)
  1. ENTRESTO [Suspect]
     Active Substance: SACUBITRIL\VALSARTAN
     Dosage: 100 MG (49 MG OF SACUBITRIL, 51 MG OF VALSARTAN), BID
     Route: 048
     Dates: start: 20160809, end: 20160907
  2. ENTRESTO [Suspect]
     Active Substance: SACUBITRIL\VALSARTAN
     Indication: CARDIAC FAILURE
     Dosage: 50 MG (24 MG OF SACUBITRIL, 26 MG OF VALSARTAN), BID
     Route: 048
     Dates: start: 20160718, end: 20160808
  3. ENTRESTO [Suspect]
     Active Substance: SACUBITRIL\VALSARTAN
     Dosage: 200 MG (97 MG OF SACUBITRIL, 103 MG OF VALSARTAN), BID
     Route: 048
     Dates: end: 201910
  4. ENTRESTO [Suspect]
     Active Substance: SACUBITRIL\VALSARTAN
     Dosage: 100 MG (97.2 MG OF SACUBITRIL, 102. 8 MG OF VALSARTAN), BID
     Route: 048
     Dates: start: 20160908, end: 20190921

REACTIONS (23)
  - Asthenia [Recovered/Resolved]
  - Dyspnoea [Recovered/Resolved]
  - Delirium [Recovered/Resolved]
  - Retroperitoneal haematoma [Recovering/Resolving]
  - Dizziness [Not Recovered/Not Resolved]
  - Overdose [Unknown]
  - Cardiac failure [Recovered/Resolved]
  - Thrombosis [Recovered/Resolved]
  - Delirium [Recovered/Resolved]
  - Confusional state [Unknown]
  - Ventricular tachycardia [Recovered/Resolved]
  - Oxygen saturation decreased [Recovered/Resolved]
  - Cardiogenic shock [Recovered/Resolved]
  - Disorientation [Unknown]
  - Troponin increased [Recovered/Resolved]
  - Peroneal nerve palsy [Recovering/Resolving]
  - Acute kidney injury [Recovered/Resolved]
  - Tachypnoea [Recovered/Resolved]
  - Clostridium difficile colitis [Recovered/Resolved]
  - Clostridium difficile infection [Recovered/Resolved]
  - Agitation [Unknown]
  - Atrial fibrillation [Not Recovered/Not Resolved]
  - Cardiovascular deconditioning [Not Recovered/Not Resolved]

NARRATIVE: CASE EVENT DATE: 20171120
